FAERS Safety Report 4520856-1 (Version None)
Quarter: 2004Q4

REPORT INFORMATION
  Report Type: 
  Country: None (occurrence: None)
  Receive Date: 20041208
  Receipt Date: 20041127
  Transmission Date: 20050328
  Serious: Yes (Hospitalization)
  Sender: FDA-Public Use
  Company Number: JP-JNJFOC-20041004725

PATIENT
  Sex: Female
  Weight: 50 kg

DRUGS (9)
  1. REMICADE [Suspect]
  2. REMICADE [Suspect]
     Indication: RHEUMATOID ARTHRITIS
  3. RHEUMATREX [Suspect]
     Route: 049
  4. RHEUMATREX [Suspect]
     Indication: RHEUMATOID ARTHRITIS
     Route: 049
  5. PREDNISOLONE [Concomitant]
     Indication: RHEUMATOID ARTHRITIS
     Route: 049
  6. NABOAL SR [Concomitant]
     Route: 049
  7. MOHRUS TAPE [Concomitant]
  8. FERROMIA [Concomitant]
     Route: 049
  9. MUCOSTA [Concomitant]
     Route: 049

REACTIONS (3)
  - ALVEOLITIS ALLERGIC [None]
  - DRUG INTERACTION [None]
  - PNEUMOCYSTIS CARINII PNEUMONIA [None]
